FAERS Safety Report 9872946 (Version 3)
Quarter: 2014Q1

REPORT INFORMATION
  Report Type: Spontaneous
  Country: US (occurrence: US)
  Receive Date: 20140206
  Receipt Date: 20140312
  Transmission Date: 20141002
  Serious: No
  Sender: FDA-Public Use
  Company Number: US-ACORDA-ACO_29674_2012

PATIENT
  Age: 51 Year
  Sex: Female
  Weight: 45.35 kg

DRUGS (9)
  1. AMPYRA [Suspect]
     Indication: MULTIPLE SCLEROSIS
     Dosage: 10 MG, BID
     Route: 048
     Dates: start: 20111117, end: 201203
  2. AMPYRA [Suspect]
     Dosage: 10 MG, BID
     Dates: end: 20130318
  3. AMPYRA [Suspect]
     Dosage: 10 MG, QD
     Dates: start: 20130319, end: 20130320
  4. AMPYRA [Suspect]
     Dosage: 10 MG, BID
     Route: 048
     Dates: end: 2014
  5. GILENYA [Concomitant]
     Indication: MULTIPLE SCLEROSIS
     Dosage: 0.5 MG, QD
     Route: 048
  6. AMANTADINE [Concomitant]
     Indication: PRODUCT USED FOR UNKNOWN INDICATION
     Dosage: UNK
  7. GABAPENTIN [Concomitant]
     Indication: PRODUCT USED FOR UNKNOWN INDICATION
     Dosage: UNK
  8. DETROL [Concomitant]
     Indication: PRODUCT USED FOR UNKNOWN INDICATION
     Dosage: UNK
  9. CLONAZEPAM [Concomitant]
     Indication: PRODUCT USED FOR UNKNOWN INDICATION
     Dosage: UNK

REACTIONS (6)
  - Drug dose omission [Unknown]
  - Gait disturbance [Unknown]
  - Gait disturbance [Unknown]
  - Coordination abnormal [Unknown]
  - Balance disorder [Unknown]
  - Multiple sclerosis relapse [Unknown]
